FAERS Safety Report 5929534-5 (Version None)
Quarter: 2008Q4

REPORT INFORMATION
  Report Type: 
  Country: None (occurrence: None)
  Receive Date: 20081024
  Receipt Date: 20081015
  Transmission Date: 20090506
  Serious: Yes (Other)
  Sender: FDA-Public Use
  Company Number: B0541642A

PATIENT
  Age: 38 Year
  Sex: Male

DRUGS (3)
  1. IMIGRANE [Suspect]
     Indication: CLUSTER HEADACHE
     Dosage: 6MG UNKNOWN
     Route: 058
     Dates: start: 19990915, end: 19991015
  2. ZOMIG [Concomitant]
     Indication: CLUSTER HEADACHE
  3. NARATRIPTAN [Concomitant]
     Indication: CLUSTER HEADACHE

REACTIONS (3)
  - MUSCULOSKELETAL PAIN [None]
  - OSTEONECROSIS [None]
  - PARAESTHESIA [None]
